FAERS Safety Report 23014119 (Version 1)
Quarter: 2023Q4

REPORT INFORMATION
  Report Type: Other
  Country: AU (occurrence: AU)
  Receive Date: 20231002
  Receipt Date: 20231002
  Transmission Date: 20240110
  Serious: Yes (Other)
  Sender: FDA-Public Use
  Company Number: AU-CELLTRION INC.-2023AU018747

PATIENT

DRUGS (1)
  1. RITUXIMAB [Suspect]
     Active Substance: RITUXIMAB
     Indication: Product used for unknown indication

REACTIONS (11)
  - Syncope [Unknown]
  - Vomiting [Unknown]
  - Arthralgia [Unknown]
  - Asthenia [Unknown]
  - Chills [Unknown]
  - Dyspnoea [Unknown]
  - Malaise [Unknown]
  - Paraesthesia [Unknown]
  - Pyrexia [Unknown]
  - Rash [Unknown]
  - Vision blurred [Unknown]
